FAERS Safety Report 24268425 (Version 5)
Quarter: 2025Q3

REPORT INFORMATION
  Report Type: Spontaneous
  Country: EU (occurrence: EU)
  Receive Date: 20240830
  Receipt Date: 20250819
  Transmission Date: 20251021
  Serious: Yes (Other)
  Sender: NOVARTIS
  Company Number: EU-002147023-NVSC2024BE154655

PATIENT
  Age: 32 Year
  Sex: Female

DRUGS (50)
  1. CERTICAN [Suspect]
     Active Substance: EVEROLIMUS
     Indication: Liver transplant
     Dosage: 1.5 MG, QD (0.75 MG, BID/1ST LTX)
     Route: 048
  2. CERTICAN [Suspect]
     Active Substance: EVEROLIMUS
     Indication: Immunosuppressant drug therapy
     Dosage: 3 MG, QD (1ST LTX )
     Route: 048
  3. CERTICAN [Suspect]
     Active Substance: EVEROLIMUS
     Indication: Prophylaxis against transplant rejection
     Route: 048
  4. CERTICAN [Suspect]
     Active Substance: EVEROLIMUS
     Dosage: 0.75 MG, BID
     Route: 065
  5. CERTICAN [Suspect]
     Active Substance: EVEROLIMUS
     Route: 065
  6. BASILIXIMAB [Suspect]
     Active Substance: BASILIXIMAB
     Indication: Immunosuppressant drug therapy
     Route: 065
  7. BASILIXIMAB [Suspect]
     Active Substance: BASILIXIMAB
     Indication: Liver transplant
  8. TACROLIMUS [Suspect]
     Active Substance: TACROLIMUS
     Indication: Prophylaxis against transplant rejection
     Dosage: 8 MG, QD (/TAC TROUGH LEVEL (TL) OF APPROXIMATELY 6.8 NG/ML; 1ST LTX)
     Route: 065
  9. TACROLIMUS [Suspect]
     Active Substance: TACROLIMUS
     Indication: Transplant rejection
     Dosage: 3 MG, QD (/RESTART LOW DOSE; 1ST LTX )
     Route: 065
  10. TACROLIMUS [Suspect]
     Active Substance: TACROLIMUS
     Indication: Immunosuppressant drug therapy
     Dosage: 9 MG, QD (/FOR 2ND LTX; REACHING A STABLE TAC TL IN THE RANGE OF 5-8 NG/ML AFTER THE FIRST POSTOPERA
     Route: 065
  11. TACROLIMUS [Suspect]
     Active Substance: TACROLIMUS
     Route: 065
  12. TACROLIMUS [Suspect]
     Active Substance: TACROLIMUS
     Route: 065
  13. TACROLIMUS [Suspect]
     Active Substance: TACROLIMUS
     Route: 065
  14. TACROLIMUS [Suspect]
     Active Substance: TACROLIMUS
     Route: 065
  15. TACROLIMUS [Suspect]
     Active Substance: TACROLIMUS
     Route: 065
  16. TACROLIMUS [Suspect]
     Active Substance: TACROLIMUS
     Route: 065
  17. TACROLIMUS [Suspect]
     Active Substance: TACROLIMUS
     Route: 065
  18. TACROLIMUS [Suspect]
     Active Substance: TACROLIMUS
     Route: 065
  19. TACROLIMUS [Suspect]
     Active Substance: TACROLIMUS
     Route: 065
  20. TACROLIMUS [Suspect]
     Active Substance: TACROLIMUS
     Route: 065
  21. CELLCEPT [Suspect]
     Active Substance: MYCOPHENOLATE MOFETIL
     Indication: Prophylaxis against transplant rejection
     Dosage: 1000 MG, QD (/FOR 1ST LTX )
     Route: 065
  22. CELLCEPT [Suspect]
     Active Substance: MYCOPHENOLATE MOFETIL
     Indication: Immunosuppressant drug therapy
     Dosage: 2000 MG, QD (/INCREASE; FOR 1ST LTX)
     Route: 065
  23. CELLCEPT [Suspect]
     Active Substance: MYCOPHENOLATE MOFETIL
     Dosage: 1000 MG, QD (/FOR 2ND LTX)
     Route: 065
  24. CELLCEPT [Suspect]
     Active Substance: MYCOPHENOLATE MOFETIL
     Dosage: 2000 MG, QD (/FOR 2ND LTX)
     Route: 065
  25. GRAFALON [Suspect]
     Active Substance: LAPINE T-LYMPHOCYTE IMMUNE GLOBULIN
     Indication: Immunosuppressant drug therapy
     Dosage: 2 MG/KG, QD
     Route: 065
  26. GRAFALON [Suspect]
     Active Substance: LAPINE T-LYMPHOCYTE IMMUNE GLOBULIN
     Indication: Transplant rejection
     Dosage: 3 MG/KG, QD
     Route: 048
  27. GRAFALON [Suspect]
     Active Substance: LAPINE T-LYMPHOCYTE IMMUNE GLOBULIN
     Indication: Prophylaxis against transplant rejection
     Route: 065
  28. MEDROL [Suspect]
     Active Substance: METHYLPREDNISOLONE
     Indication: Immunosuppressant drug therapy
     Dosage: 16 MG, QD (FOLLOWED BY A REDUCTION TO 8 MG/DAYFOR ONE WEEK, 4 MG/DAY FOR ONE WEEK, AND THEN DISCONTI
     Route: 065
  29. MEDROL [Suspect]
     Active Substance: METHYLPREDNISOLONE
     Indication: Prophylaxis against transplant rejection
     Dosage: 1000 MG, QD (FOR 3 DAYS)
     Route: 042
  30. MEDROL [Suspect]
     Active Substance: METHYLPREDNISOLONE
     Indication: Transplant rejection
     Dosage: 8 MG, QD
     Route: 048
  31. MEDROL [Suspect]
     Active Substance: METHYLPREDNISOLONE
     Indication: Prophylaxis against transplant rejection
     Dosage: 4 MG, QD (FOLLOWED BY A REDUCTION TO 8 MG/DAYFOR ONE WEEK, 4 MG/DAY FOR ONE WEEK, AND THEN DISCONTIN
     Route: 065
  32. MEDROL [Suspect]
     Active Substance: METHYLPREDNISOLONE
     Dosage: 16 MG, QD
     Route: 048
  33. MEDROL [Suspect]
     Active Substance: METHYLPREDNISOLONE
     Dosage: 8 MG, QD (/FOR 2ND LTX)
     Route: 048
  34. MEDROL [Suspect]
     Active Substance: METHYLPREDNISOLONE
     Dosage: 4 MG, QD (FOR 2ND LTX)
     Route: 048
  35. SOLU-MEDROL [Suspect]
     Active Substance: METHYLPREDNISOLONE SODIUM SUCCINATE
     Indication: Immunosuppressant drug therapy
     Route: 048
  36. SOLU-MEDROL [Suspect]
     Active Substance: METHYLPREDNISOLONE SODIUM SUCCINATE
     Indication: Prophylaxis against transplant rejection
     Dosage: 1000 MG, QD (/PULSE CORTICOSTEROID THERAPY DURING 2ND LTX ACR)
     Route: 065
  37. SOLU-MEDROL [Suspect]
     Active Substance: METHYLPREDNISOLONE SODIUM SUCCINATE
     Indication: Transplant rejection
     Dosage: 1000 MG, QD (/PULSE CORTICOSTEROID THERAPY DURING 2ND LTX ACR)
     Route: 065
  38. SOLU-MEDROL [Suspect]
     Active Substance: METHYLPREDNISOLONE SODIUM SUCCINATE
     Indication: Prophylaxis against transplant rejection
  39. CISPLATIN [Suspect]
     Active Substance: CISPLATIN
     Indication: Hepatocellular carcinoma
     Route: 065
  40. TACROLIMUS [Suspect]
     Active Substance: TACROLIMUS
     Indication: Immunosuppressant drug therapy
     Route: 065
  41. TACROLIMUS [Suspect]
     Active Substance: TACROLIMUS
     Indication: Prophylaxis against transplant rejection
     Route: 065
  42. TACROLIMUS [Suspect]
     Active Substance: TACROLIMUS
     Route: 065
  43. THYMOCYTE IMMUNE GLOBULIN NOS [Suspect]
     Active Substance: THYMOCYTE IMMUNE GLOBULIN NOS
     Indication: Immunosuppressant drug therapy
     Dosage: 2 MG/KG, QD (2 MG/KG/1ST LTX)
     Route: 048
  44. THYMOCYTE IMMUNE GLOBULIN NOS [Suspect]
     Active Substance: THYMOCYTE IMMUNE GLOBULIN NOS
     Indication: Prophylaxis against transplant rejection
     Dosage: 2 MG/KG, QD
     Route: 065
  45. MABTHERA [Suspect]
     Active Substance: RITUXIMAB
     Indication: Prophylaxis against transplant rejection
     Route: 065
  46. MABTHERA [Suspect]
     Active Substance: RITUXIMAB
     Route: 065
  47. ADRIAMYCIN [Suspect]
     Active Substance: DOXORUBICIN HYDROCHLORIDE
     Indication: Hepatocellular carcinoma
     Route: 065
  48. BASILIXIMAB [Concomitant]
     Active Substance: BASILIXIMAB
     Indication: Prophylaxis against transplant rejection
     Route: 065
  49. RIFAMPIN [Concomitant]
     Active Substance: RIFAMPIN
     Indication: Pruritus
     Route: 065
  50. RIFAMPIN [Concomitant]
     Active Substance: RIFAMPIN
     Route: 065

REACTIONS (20)
  - Thrombotic microangiopathy [Unknown]
  - Haemolytic anaemia [Unknown]
  - Thrombocytopenia [Unknown]
  - Renal failure [Unknown]
  - Nausea [Unknown]
  - Asthenia [Unknown]
  - Dizziness [Unknown]
  - Dyspnoea exertional [Unknown]
  - Abdominal pain upper [Unknown]
  - Transplant rejection [Unknown]
  - Nausea [Unknown]
  - Faeces discoloured [Unknown]
  - Choluria [Unknown]
  - Pruritus [Unknown]
  - Toxic cardiomyopathy [Unknown]
  - Cholestatic pruritus [Not Recovered/Not Resolved]
  - Bile duct stenosis [Not Recovered/Not Resolved]
  - Glucose tolerance impaired [Unknown]
  - Hypertension [Unknown]
  - Off label use [Unknown]
